FAERS Safety Report 6414154-9 (Version None)
Quarter: 2009Q4

REPORT INFORMATION
  Report Type: 
  Country: None (occurrence: None)
  Receive Date: 20091026
  Receipt Date: 20091014
  Transmission Date: 20100525
  Serious: Yes (Hospitalization, Other)
  Sender: FDA-Public Use
  Company Number: US-PFIZER INC-2009264061

PATIENT
  Sex: Female
  Weight: 64.399 kg

DRUGS (6)
  1. CHANTIX [Suspect]
     Indication: SMOKING CESSATION THERAPY
     Dosage: 0.5 MG, 2X/DAY
     Route: 048
     Dates: start: 20090201, end: 20090401
  2. CHANTIX [Suspect]
     Dosage: 0.5 MG, 1X/DAY
     Route: 048
     Dates: start: 20090205
  3. PROGESTERONE [Concomitant]
     Indication: TURNER'S SYNDROME
  4. GABAPENTIN [Concomitant]
  5. LEXAPRO [Concomitant]
  6. BUSPAR [Concomitant]

REACTIONS (13)
  - ABDOMINAL PAIN [None]
  - ABDOMINAL PAIN UPPER [None]
  - ANXIETY [None]
  - ASTHMA [None]
  - BLOOD CHOLESTEROL INCREASED [None]
  - CHEST PAIN [None]
  - CHRONIC OBSTRUCTIVE PULMONARY DISEASE [None]
  - FEELING ABNORMAL [None]
  - FIBROMYALGIA [None]
  - INSOMNIA [None]
  - LIPIDS INCREASED [None]
  - PALPITATIONS [None]
  - RETINAL HAEMORRHAGE [None]
